FAERS Safety Report 7101195-1 (Version None)
Quarter: 2010Q4

REPORT INFORMATION
  Report Type: 
  Country: None (occurrence: None)
  Receive Date: 20101115
  Receipt Date: 20101020
  Transmission Date: 20110411
  Serious: Yes (Death)
  Sender: FDA-Public Use
  Company Number: GB-AMGEN-GBRCT2010000770

PATIENT

DRUGS (8)
  1. ETANERCEPT [Suspect]
     Indication: RHEUMATOID ARTHRITIS
     Dosage: 25 MG, 2 TIMES/WK
     Dates: start: 20040615, end: 20041015
  2. PREDNISOLONE [Concomitant]
     Dosage: UNKNOWN
  3. NIZATIDINE [Concomitant]
     Dosage: UNKNOWN
  4. CODEINE PHOSPHATE/PARACETAMOL [Concomitant]
     Dosage: UNKNOWN
  5. DIDRONEL [Concomitant]
     Dosage: UNKNOWN
  6. FOLIC ACID [Concomitant]
     Dosage: UNKNOWN
  7. METHOTREXATE [Concomitant]
     Dosage: UNKNOWN
  8. ACEMETACIN [Concomitant]
     Dosage: UNKNOWN

REACTIONS (1)
  - ACUTE MYOCARDIAL INFARCTION [None]
